FAERS Safety Report 21111357 (Version 4)
Quarter: 2022Q3

REPORT INFORMATION
  Report Type: Spontaneous
  Country: US (occurrence: US)
  Receive Date: 20220721
  Receipt Date: 20220825
  Transmission Date: 20221027
  Serious: Yes (Other)
  Sender: FDA-Public Use
  Company Number: US-UNITED THERAPEUTICS-UNT-2022-014738

PATIENT
  Sex: Female
  Weight: 103.86 kg

DRUGS (5)
  1. TYVASO [Suspect]
     Active Substance: TREPROSTINIL
     Indication: Pulmonary arterial hypertension
     Dosage: UNK
     Dates: start: 20220616
  2. TYVASO [Suspect]
     Active Substance: TREPROSTINIL
     Dosage: 18-72 ?G, QID
     Dates: start: 2022
  3. TYVASO [Suspect]
     Active Substance: TREPROSTINIL
     Dosage: UNK (DOSE INCREASED)
     Dates: start: 2022
  4. TYVASO [Suspect]
     Active Substance: TREPROSTINIL
     Dosage: 36 ?G, QID
     Dates: start: 2022
  5. TYVASO [Suspect]
     Active Substance: TREPROSTINIL
     Dosage: 36 ?G, QID
     Dates: start: 2022

REACTIONS (10)
  - Hypoxia [Unknown]
  - Palpitations [Recovered/Resolved]
  - Cough [Unknown]
  - Dizziness [Unknown]
  - Oedema [Unknown]
  - Hypertension [Unknown]
  - Hypotension [Unknown]
  - Device electrical finding [Unknown]
  - Device power source issue [Unknown]
  - Device failure [Unknown]

NARRATIVE: CASE EVENT DATE: 20220101
